FAERS Safety Report 6023700-9 (Version None)
Quarter: 2008Q4

REPORT INFORMATION
  Report Type: 
  Country: None (occurrence: None)
  Receive Date: 20081226
  Receipt Date: 20081226
  Transmission Date: 20090506
  Serious: Yes (Other)
  Sender: FDA-Public Use
  Company Number: None

PATIENT
  Age: 82 Year
  Sex: Female
  Weight: 78.9259 kg

DRUGS (1)
  1. SYNTHROID [Suspect]
     Indication: THYROID NEOPLASM
     Dosage: 25 MG. ONCE A DAY
     Dates: start: 20060901, end: 20081001

REACTIONS (8)
  - ACTIVITIES OF DAILY LIVING IMPAIRED [None]
  - ADJUSTMENT DISORDER [None]
  - ANXIETY [None]
  - ASTHENIA [None]
  - BLOOD PRESSURE FLUCTUATION [None]
  - BLOOD PRESSURE INADEQUATELY CONTROLLED [None]
  - GENERAL PHYSICAL HEALTH DETERIORATION [None]
  - PARADOXICAL DRUG REACTION [None]
